FAERS Safety Report 8302021-5 (Version None)
Quarter: 2012Q2

REPORT INFORMATION
  Report Type: 
  Country: None (occurrence: None)
  Receive Date: 20120420
  Receipt Date: 20120417
  Transmission Date: 20120825
  Serious: Yes (Life-Threatening, Other)
  Sender: FDA-Public Use
  Company Number: US-MERCK-1202USA03597

PATIENT
  Age: 50 Year
  Sex: Female
  Weight: 59 kg

DRUGS (2)
  1. FOSAPREPITANT DIMEGLUMINE [Suspect]
     Route: 041
     Dates: start: 20120130, end: 20120130
  2. FOSAPREPITANT DIMEGLUMINE [Suspect]
     Indication: NAUSEA
     Route: 041
     Dates: start: 20120222, end: 20120222

REACTIONS (6)
  - CHILLS [None]
  - PAIN [None]
  - CHEST PAIN [None]
  - MUSCLE TWITCHING [None]
  - DYSPNOEA [None]
  - FLUSHING [None]
